FAERS Safety Report 7554748-0 (Version None)
Quarter: 2011Q2

REPORT INFORMATION
  Report Type: 
  Country: None (occurrence: None)
  Receive Date: 20110617
  Receipt Date: 20110608
  Transmission Date: 20111010
  Serious: Yes (Other)
  Sender: FDA-Public Use
  Company Number: AU-JNJFOC-20110606374

PATIENT
  Sex: Male

DRUGS (5)
  1. STELARA [Suspect]
     Route: 058
     Dates: start: 20110418
  2. STELARA [Suspect]
     Route: 058
     Dates: start: 20110128
  3. ANTI-INFLAMMATORY [Concomitant]
  4. STELARA [Suspect]
     Indication: PRODUCT USED FOR UNKNOWN INDICATION
     Route: 058
     Dates: start: 20101230
  5. ANTIBIOTICS [Concomitant]

REACTIONS (1)
  - PNEUMONIA [None]
